FAERS Safety Report 23529090 (Version 1)
Quarter: 2024Q1

REPORT INFORMATION
  Report Type: Spontaneous
  Country: NP (occurrence: NP)
  Receive Date: 20240216
  Receipt Date: 20240216
  Transmission Date: 20240410
  Serious: Yes (Hospitalization, Other)
  Sender: FDA-Public Use
  Company Number: NP-MLMSERVICE-20240130-4804403-1

PATIENT
  Age: 38 Year
  Sex: Female

DRUGS (1)
  1. AMOXICILLIN [Interacting]
     Active Substance: AMOXICILLIN
     Indication: Oropharyngeal pain
     Dosage: UNK
     Route: 065

REACTIONS (3)
  - Hypotension [Unknown]
  - Erythema multiforme [Recovered/Resolved]
  - Herbal interaction [Recovering/Resolving]
